FAERS Safety Report 20182823 (Version 2)
Quarter: 2022Q1

REPORT INFORMATION
  Report Type: Spontaneous
  Country: US (occurrence: US)
  Receive Date: 20211214
  Receipt Date: 20220111
  Transmission Date: 20220423
  Serious: No
  Sender: FDA-Public Use
  Company Number: US-PFIZER INC-202101594295

PATIENT
  Age: 14 Year
  Sex: Male
  Weight: 48.44 kg

DRUGS (1)
  1. GENOTROPIN [Suspect]
     Active Substance: SOMATROPIN
     Indication: Growth disorder
     Dosage: 1.6 EVERY NIGHT

REACTIONS (4)
  - Decreased appetite [Unknown]
  - Device use issue [Unknown]
  - Drug dose omission by device [Unknown]
  - Poor quality device used [Unknown]
